FAERS Safety Report 10069669 (Version 2)
Quarter: 2014Q2

REPORT INFORMATION
  Report Type: Report from Study
  Country: JP (occurrence: JP)
  Receive Date: 20140410
  Receipt Date: 20140531
  Transmission Date: 20141212
  Serious: Yes (Other)
  Sender: FDA-Public Use
  Company Number: JP-AMGEN-JPNCT2014025207

PATIENT
  Age: 76 Year
  Sex: Male
  Weight: 42 kg

DRUGS (16)
  1. ROMIPLOSTIM - KHK [Suspect]
     Indication: IMMUNE THROMBOCYTOPENIC PURPURA
     Dosage: 7 MUG/KG, QWK
     Route: 058
     Dates: start: 20130723
  2. PREDONINE                          /00016201/ [Concomitant]
     Indication: IMMUNE THROMBOCYTOPENIC PURPURA
     Dosage: 25 MG, UNK
     Route: 048
     Dates: start: 20130709, end: 20131117
  3. VENILON I [Concomitant]
     Indication: IMMUNE THROMBOCYTOPENIC PURPURA
     Dosage: 400 MG, UNK
     Route: 065
     Dates: start: 20140110, end: 20140114
  4. ISCOTIN                            /00030201/ [Concomitant]
     Indication: PROPHYLAXIS
     Dosage: UNK
     Route: 048
  5. TAKEPRON [Concomitant]
     Indication: PROPHYLAXIS
     Dosage: UNK
     Route: 048
  6. PYDOXAL [Concomitant]
     Indication: PROPHYLAXIS
     Dosage: UNK
     Route: 048
  7. BACTRAMIN [Concomitant]
     Dosage: UNK
     Route: 048
  8. BONALON [Concomitant]
     Dosage: 35 MG, UNK
     Route: 048
  9. GASCON [Concomitant]
     Indication: GASTRITIS
     Dosage: UNK
     Route: 048
  10. BIOFERMIN                          /01617201/ [Concomitant]
     Indication: PROPHYLAXIS
     Dosage: UNK
     Route: 048
  11. JANUVIA [Concomitant]
     Indication: DIABETES MELLITUS
     Dosage: UNK
     Route: 048
  12. BAYASPIRIN [Concomitant]
     Indication: PROPHYLAXIS
     Dosage: UNK
     Route: 048
  13. ARTIST [Concomitant]
     Indication: ATRIAL FIBRILLATION
     Dosage: UNK
     Route: 048
  14. MOSAPRIDE CITRATE [Concomitant]
     Indication: GASTRITIS
     Dosage: UNK
     Route: 048
  15. XARELTO [Concomitant]
     Indication: PROPHYLAXIS
     Dosage: UNK
     Route: 048
  16. KENKETSU GLOVENIN I NICHIYAKU [Concomitant]
     Indication: HYPOGAMMAGLOBULINAEMIA
     Dosage: UNK
     Route: 065

REACTIONS (5)
  - Muscular weakness [Not Recovered/Not Resolved]
  - Platelet count decreased [Not Recovered/Not Resolved]
  - Oedema peripheral [Recovering/Resolving]
  - Folliculitis [Recovered/Resolved]
  - Eczema asteatotic [Recovering/Resolving]
